FAERS Safety Report 4588699-0 (Version None)
Quarter: 2005Q1

REPORT INFORMATION
  Report Type: 
  Country: None (occurrence: None)
  Receive Date: 20050214
  Receipt Date: 20050214
  Transmission Date: 20050727
  Serious: Yes (Hospitalization, Other)
  Sender: FDA-Public Use
  Company Number: None

PATIENT
  Age: 22 Year
  Sex: Female
  Weight: 68.0396 kg

DRUGS (7)
  1. INFLIXIMAB [Suspect]
     Indication: CROHN'S DISEASE
     Dosage: 10 MG/ KG IV OTO Q 6 WEEKS
     Route: 042
     Dates: start: 20041112
  2. INFLIXIMAB [Suspect]
     Indication: RHEUMATOID ARTHRITIS
     Dosage: 10 MG/ KG IV OTO Q 6 WEEKS
     Route: 042
     Dates: start: 20041112
  3. METHOTREXATE [Concomitant]
  4. INFLIXIMAB [Concomitant]
  5. ORTHO TRI-CYCLEN [Concomitant]
  6. FLAGYL [Concomitant]
  7. ENDOCORT [Concomitant]

REACTIONS (4)
  - ARTHRALGIA [None]
  - FLUSHING [None]
  - MYALGIA [None]
  - NAUSEA [None]
